FAERS Safety Report 5567278-2 (Version None)
Quarter: 2007Q4

REPORT INFORMATION
  Report Type: 
  Country: None (occurrence: None)
  Receive Date: 20071130
  Receipt Date: 20070809
  Transmission Date: 20080405
  Serious: No
  Sender: FDA-Public Use
  Company Number: US200708002269

PATIENT
  Age: 48 Year
  Sex: Female

DRUGS (8)
  1. BYETTA [Suspect]
     Indication: INSULIN-REQUIRING TYPE II DIABETES MELLITUS
     Dosage: 5 UG, 2/D, SUBCUTANEOUS
     Route: 058
     Dates: start: 20070701
  2. LEVEMIR (INSULIN DETEMIR) [Concomitant]
  3. METFORMIN HCL [Concomitant]
  4. LOVASTATIN [Concomitant]
  5. ZETIA [Concomitant]
  6. GLIPIZIDE [Concomitant]
  7. NEXIUM [Concomitant]
  8. ASPIRIN [Concomitant]

REACTIONS (2)
  - MYALGIA [None]
  - NECK PAIN [None]
